FAERS Safety Report 18485316 (Version 2)
Quarter: 2021Q3

REPORT INFORMATION
  Report Type: Spontaneous
  Country: CA (occurrence: CA)
  Receive Date: 20201110
  Receipt Date: 20210915
  Transmission Date: 20211014
  Serious: Yes (Hospitalization, Other)
  Sender: FDA-Public Use
  Company Number: CA-SAMSUNG BIOEPIS-SB-2020-33828

PATIENT
  Age: 59 Year
  Sex: Female
  Weight: 63 kg

DRUGS (3)
  1. PENTASA [Concomitant]
     Active Substance: MESALAMINE
     Indication: PRODUCT USED FOR UNKNOWN INDICATION
     Route: 065
  2. INFLIXIMAB [Suspect]
     Active Substance: INFLIXIMAB
     Indication: COLITIS ULCERATIVE
     Dosage: THERAPY DURATION MINUS 99 (UNITS UNKNOWN)
     Route: 042
  3. PENTASA [Concomitant]
     Active Substance: MESALAMINE
     Dosage: UNKNOWN
     Route: 065

REACTIONS (13)
  - Hypertension [Unknown]
  - Therapeutic product effect incomplete [Unknown]
  - Balance disorder [Unknown]
  - Product use issue [Unknown]
  - Blood iron decreased [Unknown]
  - Lower limb fracture [Unknown]
  - Patella fracture [Unknown]
  - Blindness unilateral [Unknown]
  - Condition aggravated [Unknown]
  - Fall [Unknown]
  - Weight fluctuation [Unknown]
  - Faecal calprotectin increased [Unknown]
  - Off label use [Unknown]
